FAERS Safety Report 26114882 (Version 1)
Quarter: 2025Q4

REPORT INFORMATION
  Report Type: Report from Study
  Country: EU (occurrence: EU)
  Receive Date: 20251203
  Receipt Date: 20251203
  Transmission Date: 20260118
  Serious: Yes (Hospitalization)
  Sender: ABBVIE
  Company Number: EU-ABBVIE-6570381

PATIENT
  Age: 60 Year
  Sex: Male

DRUGS (10)
  1. RINVOQ [Suspect]
     Active Substance: UPADACITINIB
     Indication: Psoriatic arthropathy
     Route: 048
  2. IBUPROFEN [Suspect]
     Active Substance: IBUPROFEN
     Indication: Psoriatic arthropathy
     Route: 065
     Dates: start: 20191101
  3. IBUPROFEN [Suspect]
     Active Substance: IBUPROFEN
     Indication: Psoriatic arthropathy
     Route: 065
     Dates: start: 20230405
  4. IBUPROFEN [Suspect]
     Active Substance: IBUPROFEN
     Indication: Psoriatic arthropathy
     Route: 065
     Dates: start: 20250317
  5. COSENTYX [Suspect]
     Active Substance: SECUKINUMAB
     Indication: Psoriatic arthropathy
     Route: 065
     Dates: start: 20180802
  6. COSENTYX [Suspect]
     Active Substance: SECUKINUMAB
     Indication: Psoriatic arthropathy
     Route: 065
     Dates: start: 20180802, end: 20191115
  7. COSENTYX [Suspect]
     Active Substance: SECUKINUMAB
     Indication: Psoriatic arthropathy
     Route: 065
     Dates: start: 20200115, end: 20200115
  8. ACEMETACIN [Suspect]
     Active Substance: ACEMETACIN
     Indication: Psoriatic arthropathy
     Route: 065
     Dates: start: 20170301
  9. ACEMETACIN [Suspect]
     Active Substance: ACEMETACIN
     Indication: Psoriatic arthropathy
     Route: 065
     Dates: start: 20170301, end: 20191101
  10. ACEMETACIN [Suspect]
     Active Substance: ACEMETACIN
     Indication: Psoriatic arthropathy
     Route: 065
     Dates: start: 20200727, end: 20211215

REACTIONS (4)
  - Depression [Not Recovered/Not Resolved]
  - Alcoholism [Not Recovered/Not Resolved]
  - Alcohol withdrawal syndrome [Not Recovered/Not Resolved]
  - Polyneuropathy [Not Recovered/Not Resolved]

NARRATIVE: CASE EVENT DATE: 20241004
